FAERS Safety Report 10779709 (Version 2)
Quarter: 2015Q1

REPORT INFORMATION
  Report Type: Spontaneous
  Country: GB (occurrence: GB)
  Receive Date: 20150210
  Receipt Date: 20150216
  Transmission Date: 20150721
  Serious: Yes (Other)
  Sender: FDA-Public Use
  Company Number: GB-AUROBINDO-AUR-APL-2015-01043

PATIENT
  Age: 49 Year
  Sex: Female

DRUGS (12)
  1. AMOXICILLIN. [Concomitant]
     Active Substance: AMOXICILLIN
     Indication: HELICOBACTER INFECTION
  2. AMOXICILLIN. [Concomitant]
     Active Substance: AMOXICILLIN
     Indication: ABDOMINAL DISTENSION
  3. LANSOPRAZOLE. [Concomitant]
     Active Substance: LANSOPRAZOLE
     Indication: ABDOMINAL PAIN UPPER
  4. LANSOPRAZOLE. [Concomitant]
     Active Substance: LANSOPRAZOLE
     Indication: HELICOBACTER INFECTION
  5. CLARITHROMYCIN. [Suspect]
     Active Substance: CLARITHROMYCIN
     Indication: ABDOMINAL DISTENSION
  6. CLARITHROMYCIN. [Suspect]
     Active Substance: CLARITHROMYCIN
     Indication: ABDOMINAL PAIN UPPER
  7. LANSOPRAZOLE. [Concomitant]
     Active Substance: LANSOPRAZOLE
     Indication: GASTRITIS
     Dosage: 30 MG, TWO TIMES A DAY
     Route: 065
  8. CLARITHROMYCIN. [Suspect]
     Active Substance: CLARITHROMYCIN
     Indication: GASTRITIS
     Dosage: 500 MG, TWO TIMES A DAY
     Route: 065
  9. AMOXICILLIN. [Concomitant]
     Active Substance: AMOXICILLIN
     Indication: GASTRITIS
     Dosage: 1 G, TWO TIMES A DAY
     Route: 065
  10. AMOXICILLIN. [Concomitant]
     Active Substance: AMOXICILLIN
     Indication: ABDOMINAL PAIN UPPER
  11. CLARITHROMYCIN. [Suspect]
     Active Substance: CLARITHROMYCIN
     Indication: HELICOBACTER INFECTION
  12. LANSOPRAZOLE. [Concomitant]
     Active Substance: LANSOPRAZOLE
     Indication: ABDOMINAL DISTENSION

REACTIONS (32)
  - Personality change [Recovered/Resolved]
  - Stress [Recovered/Resolved]
  - Incoherent [Recovered/Resolved]
  - Paranoia [Recovered/Resolved]
  - Insomnia [Recovered/Resolved]
  - Pressure of speech [Recovered/Resolved]
  - Stubbornness [Recovered/Resolved]
  - Agitation [Recovered/Resolved]
  - Abnormal behaviour [Recovered/Resolved]
  - Suspiciousness [Recovered/Resolved]
  - Confusional state [Recovered/Resolved]
  - Blood thyroid stimulating hormone increased [Recovered/Resolved]
  - Hallucinations, mixed [Recovered/Resolved]
  - Mental status changes [Recovered/Resolved]
  - Tangentiality [Recovered/Resolved]
  - Psychotic disorder [Recovered/Resolved]
  - Delusion [Recovered/Resolved]
  - Psychomotor hyperactivity [Recovered/Resolved]
  - Verbal abuse [Recovered/Resolved]
  - Hypomania [Recovered/Resolved]
  - Malaise [Recovered/Resolved]
  - Thinking abnormal [Recovered/Resolved]
  - Unresponsive to stimuli [Recovered/Resolved]
  - Screaming [Recovered/Resolved]
  - General physical health deterioration [Recovered/Resolved]
  - Violence-related symptom [Recovered/Resolved]
  - Histrionic personality disorder [Recovered/Resolved]
  - Circumstantiality [Recovered/Resolved]
  - Irritability [Recovered/Resolved]
  - Panic reaction [Recovered/Resolved]
  - Mood swings [Recovered/Resolved]
  - Thought blocking [Recovered/Resolved]
